FAERS Safety Report 4596083-9 (Version None)
Quarter: 2005Q1

REPORT INFORMATION
  Report Type: 
  Country: None (occurrence: None)
  Receive Date: 20050225
  Receipt Date: 20050209
  Transmission Date: 20050727
  Serious: Yes (Hospitalization)
  Sender: FDA-Public Use
  Company Number: DSA_25915_2005

PATIENT
  Age: 31 Month
  Sex: Male

DRUGS (2)
  1. TAVOR [Suspect]
     Dosage: 1 MG ONCE PO
     Route: 048
     Dates: start: 20050205, end: 20050205
  2. RISPERDAL [Suspect]
     Dosage: 1 MG ONCE SL
     Route: 060
     Dates: start: 20050205, end: 20050205

REACTIONS (1)
  - ACCIDENTAL OVERDOSE [None]
